FAERS Safety Report 9230144 (Version 2)
Quarter: 2013Q4

REPORT INFORMATION
  Report Type: Spontaneous
  Country: US (occurrence: US)
  Receive Date: 20130415
  Receipt Date: 20131223
  Transmission Date: 20140711
  Serious: Yes (Hospitalization, Other)
  Sender: FDA-Public Use
  Company Number: US-BAYER-2013-045410

PATIENT
  Age: 30 Year
  Sex: Female
  Weight: 62 kg

DRUGS (6)
  1. YAZ [Suspect]
     Dosage: UNK
     Dates: start: 2010, end: 2011
  2. YASMIN [Suspect]
     Dosage: UNK
     Dates: start: 2010, end: 2011
  3. SULFAMETHOXAZOLE [Concomitant]
     Dosage: UNK
     Route: 048
     Dates: start: 20110504
  4. AZITHROMYCIN [Concomitant]
     Dosage: UNK
     Route: 048
     Dates: start: 20110621
  5. PREDNISONE [Concomitant]
     Dosage: UNK
     Route: 048
     Dates: start: 20110621
  6. PREDNISONE [Concomitant]
     Dosage: UNK
     Route: 048
     Dates: start: 20110504

REACTIONS (10)
  - Deep vein thrombosis [None]
  - Thrombosis [None]
  - Pelvic venous thrombosis [None]
  - Abdominal pain [None]
  - Injury [None]
  - Pain [None]
  - General physical health deterioration [None]
  - Emotional distress [None]
  - Anxiety [None]
  - Pain [None]
